FAERS Safety Report 6107120-4 (Version None)
Quarter: 2009Q1

REPORT INFORMATION
  Report Type: 
  Country: None (occurrence: None)
  Receive Date: 20090309
  Receipt Date: 20090224
  Transmission Date: 20090719
  Serious: Yes (Other)
  Sender: FDA-Public Use
  Company Number: PHHY2009JP05819

PATIENT
  Age: 85 Year
  Sex: Female

DRUGS (5)
  1. DIOVAN [Suspect]
     Indication: HYPERTENSION
     Route: 048
  2. PORTOLAC [Concomitant]
  3. URSO 250 [Concomitant]
  4. PARIET [Concomitant]
  5. SELBEX [Concomitant]

REACTIONS (4)
  - BLOOD CREATINE PHOSPHOKINASE INCREASED [None]
  - INFECTION [None]
  - MYALGIA [None]
  - RHABDOMYOLYSIS [None]
